FAERS Safety Report 4892363-8 (Version None)
Quarter: 2006Q1

REPORT INFORMATION
  Report Type: 
  Country: None (occurrence: None)
  Receive Date: 20060126
  Receipt Date: 20060109
  Transmission Date: 20060701
  Serious: Yes (Hospitalization)
  Sender: FDA-Public Use
  Company Number: DE-GLAXOSMITHKLINE-D0048403A

PATIENT
  Age: 68 Year
  Sex: Female
  Weight: 71 kg

DRUGS (2)
  1. HYCAMTIN [Suspect]
     Dosage: 2.7MG PER DAY
     Route: 042
     Dates: start: 20051128
  2. FORTECORTIN [Concomitant]
     Dosage: 8MG PER DAY
     Route: 042
     Dates: start: 20051128

REACTIONS (1)
  - THROMBOCYTHAEMIA [None]
